FAERS Safety Report 21919313 (Version 3)
Quarter: 2023Q1

REPORT INFORMATION
  Report Type: Report from Study
  Country: AU (occurrence: AU)
  Receive Date: 20230127
  Receipt Date: 20230203
  Transmission Date: 20230417
  Serious: Yes (Other)
  Sender: FDA-Public Use
  Company Number: AU-002147023-NVSC2023AU016772

PATIENT
  Age: 48 Year
  Sex: Female
  Weight: 139.6 kg

DRUGS (8)
  1. RIBOCICLIB [Suspect]
     Active Substance: RIBOCICLIB
     Indication: Neoplasm malignant
     Dosage: 600 MG
     Route: 048
     Dates: start: 20221104, end: 20230119
  2. RIBOCICLIB [Suspect]
     Active Substance: RIBOCICLIB
     Dosage: 600 MG
     Route: 048
  3. LETROZOLE [Suspect]
     Active Substance: LETROZOLE
     Indication: Neoplasm malignant
     Dosage: 2.5 MG
     Route: 048
     Dates: start: 20221104
  4. ACETAMINOPHEN [Concomitant]
     Active Substance: ACETAMINOPHEN
     Indication: Prophylaxis
     Dosage: 1 G, SIX TIMES A DAY
     Route: 048
     Dates: start: 20220916
  5. MAGNESIUM [Concomitant]
     Active Substance: MAGNESIUM
     Indication: Prophylaxis
     Dosage: 2 TABLETS, QD
     Route: 048
     Dates: start: 20221102
  6. METFORMIN [Concomitant]
     Active Substance: METFORMIN HYDROCHLORIDE
     Indication: Product used for unknown indication
     Dosage: 500 MG, QD (3 DOSES)
     Route: 065
     Dates: start: 20221212, end: 20221214
  7. METFORMIN [Concomitant]
     Active Substance: METFORMIN HYDROCHLORIDE
     Dosage: 500 MG, QD
     Route: 065
     Dates: start: 20021223, end: 20230104
  8. METFORMIN [Concomitant]
     Active Substance: METFORMIN HYDROCHLORIDE
     Dosage: 500 MG, QD
     Route: 065
     Dates: start: 20230114, end: 20230119

REACTIONS (1)
  - Hepatic failure [Unknown]

NARRATIVE: CASE EVENT DATE: 20230119
